FAERS Safety Report 5214268-5 (Version None)
Quarter: 2007Q1

REPORT INFORMATION
  Report Type: 
  Country: None (occurrence: None)
  Receive Date: 20070122
  Receipt Date: 20070115
  Transmission Date: 20070707
  Serious: Yes (Hospitalization, Other)
  Sender: FDA-Public Use
  Company Number: JP-BRISTOL-MYERS SQUIBB COMPANY-13625678

PATIENT
  Age: 47 Year
  Sex: Male

DRUGS (5)
  1. BARACLUDE [Suspect]
     Indication: HEPATITIS B
     Route: 048
     Dates: start: 20061214, end: 20061215
  2. CINAL S [Concomitant]
     Route: 048
  3. OMEPRAL [Concomitant]
     Route: 048
  4. ALINAMIN-F [Concomitant]
     Route: 048
  5. URSO [Concomitant]
     Route: 048

REACTIONS (5)
  - DRUG HYPERSENSITIVITY [None]
  - HEPATIC FUNCTION ABNORMAL [None]
  - HEPATITIS B [None]
  - JAUNDICE [None]
  - URTICARIA [None]
